FAERS Safety Report 6664394-9 (Version None)
Quarter: 2010Q2

REPORT INFORMATION
  Report Type: 
  Country: None (occurrence: None)
  Receive Date: 20100401
  Receipt Date: 20100326
  Transmission Date: 20101027
  Serious: Yes (Death)
  Sender: FDA-Public Use
  Company Number: GXKR2010KR03151

PATIENT
  Age: 33 Year
  Sex: Male

DRUGS (5)
  1. PREDNISOLONE [Suspect]
     Indication: CASTLEMAN'S DISEASE
     Dosage: 1 MG/KG/DAY
     Route: 065
  2. VINCRISTINE (NGX) [Suspect]
     Indication: CASTLEMAN'S DISEASE
     Dosage: 1.4 MG/M2, UNK
     Route: 065
  3. DEXAMETHASONE (NGX) [Suspect]
     Indication: CASTLEMAN'S DISEASE
     Dosage: 40 MG, UNK
  4. CYCLOPHOSPHAMIDE [Suspect]
     Indication: CASTLEMAN'S DISEASE
     Dosage: 800 MG/M2, UNK
     Route: 065
  5. ANTIBIOTICS [Concomitant]
     Indication: RELAPSING FEVER
     Route: 065

REACTIONS (8)
  - ACIDOSIS [None]
  - DIALYSIS [None]
  - DYSPNOEA [None]
  - HYPOTENSION [None]
  - MULTI-ORGAN FAILURE [None]
  - PYREXIA [None]
  - RENAL FAILURE [None]
  - TUMOUR LYSIS SYNDROME [None]
